FAERS Safety Report 18633750 (Version 1)
Quarter: 2020Q4

REPORT INFORMATION
  Report Type: Spontaneous
  Country: US (occurrence: US)
  Receive Date: 20201218
  Receipt Date: 20201218
  Transmission Date: 20210114
  Serious: Yes (Other)
  Sender: FDA-Public Use
  Company Number: None

PATIENT
  Age: 67 Year
  Sex: Female
  Weight: 67.5 kg

DRUGS (1)
  1. CIPROFLOXACIN. [Suspect]
     Active Substance: CIPROFLOXACIN
     Indication: URINARY TRACT INFECTION
     Dates: start: 20170526, end: 20170603

REACTIONS (5)
  - Tendonitis [None]
  - Gait disturbance [None]
  - Asthenia [None]
  - Myalgia [None]
  - Spinal osteoarthritis [None]

NARRATIVE: CASE EVENT DATE: 20170529
